FAERS Safety Report 17049277 (Version 1)
Quarter: 2019Q4

REPORT INFORMATION
  Report Type: Spontaneous
  Country: US (occurrence: US)
  Receive Date: 20191021
  Receipt Date: 20191021
  Transmission Date: 20200122
  Serious: Yes (Hospitalization)
  Sender: FDA-Public Use
  Company Number: None

PATIENT
  Age: 30 Year
  Sex: Female

DRUGS (1)
  1. GILENYA [Suspect]
     Active Substance: FINGOLIMOD HYDROCHLORIDE
     Indication: MULTIPLE SCLEROSIS
     Route: 048
     Dates: start: 20160924

REACTIONS (5)
  - Tremor [None]
  - Oropharyngeal pain [None]
  - Photopsia [None]
  - Hypoaesthesia [None]
  - Therapy non-responder [None]

NARRATIVE: CASE EVENT DATE: 20191017
